FAERS Safety Report 16251325 (Version 2)
Quarter: 2019Q2

REPORT INFORMATION
  Report Type: Report from Study
  Country: US (occurrence: US)
  Receive Date: 20190429
  Receipt Date: 20190528
  Transmission Date: 20190711
  Serious: Yes (Other)
  Sender: FDA-Public Use
  Company Number: US-AMGEN INC.-USASL2019065825

PATIENT
  Age: 46 Year
  Sex: Female

DRUGS (14)
  1. METHOCARBAMOL. [Concomitant]
     Active Substance: METHOCARBAMOL
     Dosage: 500 MILLIGRAM
  2. XANAX [Concomitant]
     Active Substance: ALPRAZOLAM
     Dosage: 2 MILLIGRAM
  3. MAGNESIUM [Concomitant]
     Active Substance: MAGNESIUM
     Dosage: UNK
  4. VITAMIN A [RETINOL] [Concomitant]
     Active Substance: RETINOL
     Dosage: UNK
  5. ETODOLAC. [Concomitant]
     Active Substance: ETODOLAC
     Dosage: 200 MILLIGRAM
  6. ALLEGRA [Concomitant]
     Active Substance: FEXOFENADINE HYDROCHLORIDE
     Dosage: UNK
  7. TIZANIDINE. [Concomitant]
     Active Substance: TIZANIDINE
     Dosage: 4 MILLIGRAM
  8. TORADOL [Concomitant]
     Active Substance: KETOROLAC TROMETHAMINE
     Dosage: UNK
  9. FENTANYL. [Concomitant]
     Active Substance: FENTANYL
     Dosage: UNK (PATCH)
     Route: 062
  10. OXYCODONE [Concomitant]
     Active Substance: OXYCODONE
     Dosage: 10 MILLIGRAM
  11. AIMOVIG [Suspect]
     Active Substance: ERENUMAB-AOOE
     Indication: MIGRAINE WITH AURA
     Dosage: 70 MILLIGRAM, QMO
     Route: 065
     Dates: start: 201901
  12. BACLOFEN. [Concomitant]
     Active Substance: BACLOFEN
     Dosage: 10 MILLIGRAM
  13. TIROSINT [Concomitant]
     Active Substance: LEVOTHYROXINE SODIUM
     Dosage: 50 MILLIGRAM
  14. SERTRALINE [Concomitant]
     Active Substance: SERTRALINE HYDROCHLORIDE
     Dosage: 100 MILLIGRAM

REACTIONS (12)
  - Joint effusion [Unknown]
  - Acute sinusitis [Not Recovered/Not Resolved]
  - Vitamin B12 deficiency [Not Recovered/Not Resolved]
  - Migraine [Not Recovered/Not Resolved]
  - Feeling abnormal [Not Recovered/Not Resolved]
  - Drug ineffective [Unknown]
  - Dyskinesia [Not Recovered/Not Resolved]
  - Pineal gland cyst [Unknown]
  - Ear canal abrasion [Not Recovered/Not Resolved]
  - Post laminectomy syndrome [Unknown]
  - Paraesthesia [Unknown]
  - Jaw cyst [Unknown]

NARRATIVE: CASE EVENT DATE: 2019
